FAERS Safety Report 6643282-8 (Version None)
Quarter: 2010Q1

REPORT INFORMATION
  Report Type: 
  Country: None (occurrence: None)
  Receive Date: 20100316
  Receipt Date: 20100308
  Transmission Date: 20100710
  Serious: Yes (Hospitalization)
  Sender: FDA-Public Use
  Company Number: LTI2009A00338

PATIENT
  Age: 54 Year
  Sex: Male

DRUGS (7)
  1. ACTOS [Suspect]
     Indication: TYPE 2 DIABETES MELLITUS
     Dosage: 15 MG (15 MG, 1-2)  15MG (15 MG, 1 IN 1 D) 30 MG (15 MG, 2 IN 1 D)
     Route: 048
     Dates: start: 20070801, end: 20071201
  2. ACTOS [Suspect]
     Indication: TYPE 2 DIABETES MELLITUS
     Dosage: 15 MG (15 MG, 1-2)  15MG (15 MG, 1 IN 1 D) 30 MG (15 MG, 2 IN 1 D)
     Route: 048
     Dates: start: 20071201, end: 20090715
  3. COAPROVEL (HYDROCHLOROTHIAZIDE, IRBESARTAN) [Suspect]
     Indication: HYPERTENSION
     Dosage: 150MG/12.5 MG (1 DF, 1 IN 1 D) 300MG/12.5 MG (1 DF, 1 IN 1 D)
     Route: 048
     Dates: start: 20070801, end: 20080401
  4. COAPROVEL (HYDROCHLOROTHIAZIDE, IRBESARTAN) [Suspect]
     Indication: HYPERTENSION
     Dosage: 150MG/12.5 MG (1 DF, 1 IN 1 D) 300MG/12.5 MG (1 DF, 1 IN 1 D)
     Route: 048
     Dates: start: 20080401, end: 20090731
  5. IPERTEN (MANIDIPINE HYDROCHLORIDE) [Concomitant]
  6. ZOLPIDEM [Concomitant]
  7. PERMIXON (SERENOA REPENS) [Concomitant]

REACTIONS (9)
  - ANAEMIA MACROCYTIC [None]
  - ASTHENIA [None]
  - COLONIC POLYP [None]
  - FEELING COLD [None]
  - LEUKOPENIA [None]
  - MONONUCLEOSIS SYNDROME [None]
  - NEUTROPENIA [None]
  - RECTAL HAEMORRHAGE [None]
  - THROMBOCYTOPENIA [None]
